FAERS Safety Report 19115665 (Version 1)
Quarter: 2021Q2

REPORT INFORMATION
  Report Type: Spontaneous
  Country: US (occurrence: US)
  Receive Date: 20210409
  Receipt Date: 20210409
  Transmission Date: 20210717
  Serious: No
  Sender: FDA-Public Use
  Company Number: US-TEVA-2021-US-1896027

PATIENT
  Age: 35 Year
  Sex: Female

DRUGS (2)
  1. TREPROSTINIL MDV [Suspect]
     Active Substance: TREPROSTINIL
     Indication: PULMONARY ARTERIAL HYPERTENSION
     Dosage: 23NG/KG/MIN
     Route: 042
     Dates: start: 20210128
  2. TREPROSTINIL. [Suspect]
     Active Substance: TREPROSTINIL
     Dosage: 24NG/KG/MIN (CONTINUOUS)
     Route: 042
     Dates: start: 20210316

REACTIONS (2)
  - Vomiting [Unknown]
  - Diarrhoea [Unknown]

NARRATIVE: CASE EVENT DATE: 20210316
